FAERS Safety Report 4328711-7 (Version None)
Quarter: 2004Q1

REPORT INFORMATION
  Report Type: 
  Country: None (occurrence: None)
  Receive Date: 20040329
  Receipt Date: 20040122
  Transmission Date: 20041129
  Serious: Yes (Hospitalization)
  Sender: FDA-Public Use
  Company Number: 03P-163-0244225-00

PATIENT
  Age: 62 Year
  Sex: Female
  Weight: 127.0072 kg

DRUGS (6)
  1. HUMIRA [Suspect]
     Indication: RHEUMATOID ARTHRITIS
     Dosage: 40 MG, 1 IN 2 WK, SUBCUTANEOUS
     Route: 058
     Dates: start: 20030601, end: 20031203
  2. ESOMEPRAZOLE [Concomitant]
  3. HYDROXYCHLOROQUINE PHOSPHATE [Concomitant]
  4. FOLIC ACID [Concomitant]
  5. CEVIMELINE HYDROCHLORIDE [Concomitant]
  6. METHOTREXATE SODIUM [Concomitant]

REACTIONS (1)
  - BREAST CANCER [None]
